FAERS Safety Report 6825494-3 (Version None)
Quarter: 2010Q3

REPORT INFORMATION
  Report Type: 
  Country: None (occurrence: None)
  Receive Date: 20100708
  Receipt Date: 20070421
  Transmission Date: 20110219
  Serious: No
  Sender: FDA-Public Use
  Company Number: US-PFIZER INC-2007002678

PATIENT
  Age: 46 Year
  Sex: Female
  Weight: 71.21 kg

DRUGS (1)
  1. CHANTIX [Suspect]
     Route: 048
     Dates: start: 20061226

REACTIONS (1)
  - URINE ODOUR ABNORMAL [None]
